FAERS Safety Report 7272418-3 (Version None)
Quarter: 2011Q1

REPORT INFORMATION
  Report Type: 
  Country: None (occurrence: None)
  Receive Date: 20110203
  Receipt Date: 20110124
  Transmission Date: 20110831
  Serious: Yes (Life-Threatening)
  Sender: FDA-Public Use
  Company Number: GB-BAYER-201045988GPV

PATIENT
  Sex: Male

DRUGS (1)
  1. INTERFERON BETA-1B [Suspect]
     Indication: MULTIPLE SCLEROSIS
     Dosage: UNK
     Dates: start: 20010101

REACTIONS (5)
  - INJECTION SITE REACTION [None]
  - FATIGUE [None]
  - DEPRESSED MOOD [None]
  - VISION BLURRED [None]
  - MYOCARDIAL INFARCTION [None]
